FAERS Safety Report 5518402-9 (Version None)
Quarter: 2007Q4

REPORT INFORMATION
  Report Type: 
  Country: None (occurrence: None)
  Receive Date: 20071115
  Receipt Date: 20070920
  Transmission Date: 20080405
  Serious: Yes (Death, Hospitalization)
  Sender: FDA-Public Use
  Company Number: JP-MERCK-0709USA00908

PATIENT
  Age: 96 Year
  Sex: Female

DRUGS (8)
  1. PEPCID [Suspect]
     Indication: PROPHYLAXIS AGAINST GASTROINTESTINAL ULCER
     Route: 041
     Dates: start: 20070825, end: 20070831
  2. CYANOCOBALAMIN AND PYRIDOXINE HYDROCHLORIDE AND THIAMINE MONONITRATE [Concomitant]
     Route: 065
     Dates: start: 20070725, end: 20070829
  3. PENTCILLIN [Concomitant]
     Indication: PNEUMONIA ASPIRATION
     Route: 065
     Dates: start: 20070810, end: 20070816
  4. PENTCILLIN [Concomitant]
     Route: 065
     Dates: start: 20070726, end: 20070806
  5. DALACIN S [Concomitant]
     Indication: PNEUMONIA ASPIRATION
     Route: 065
     Dates: start: 20070726, end: 20070806
  6. DALACIN S [Concomitant]
     Route: 065
     Dates: start: 20070810, end: 20070816
  7. ASCORBIC ACID [Concomitant]
     Indication: DEHYDRATION
     Route: 065
     Dates: start: 20070725, end: 20070829
  8. ASCORBIC ACID [Concomitant]
     Indication: ANOREXIA
     Route: 065
     Dates: start: 20070725, end: 20070829

REACTIONS (1)
  - AGRANULOCYTOSIS [None]
